FAERS Safety Report 4523942-5 (Version None)
Quarter: 2004Q4

REPORT INFORMATION
  Report Type: 
  Country: None (occurrence: None)
  Receive Date: 20041209
  Receipt Date: 20041203
  Transmission Date: 20050328
  Serious: Yes (Death, Hospitalization)
  Sender: FDA-Public Use
  Company Number: HQWYE764306DEC04

PATIENT
  Age: 58 Year
  Sex: Male

DRUGS (1)
  1. GEMTUZUMAB OZOGAMICIN (GEMTUZUMAB OZOGAMICIN, INJECTION) [Suspect]
     Indication: ACUTE MYELOID LEUKAEMIA
     Dosage: 9 MG/M^2 1X PER 1 DAY INTRAVENOUS
     Route: 042
     Dates: start: 20041104, end: 20041104

REACTIONS (3)
  - ALANINE AMINOTRANSFERASE INCREASED [None]
  - ASPARTATE AMINOTRANSFERASE INCREASED [None]
  - HEPATIC FAILURE [None]
